FAERS Safety Report 7392904-5 (Version None)
Quarter: 2011Q2

REPORT INFORMATION
  Report Type: 
  Country: None (occurrence: None)
  Receive Date: 20110404
  Receipt Date: 20110331
  Transmission Date: 20111010
  Serious: Yes (Hospitalization)
  Sender: FDA-Public Use
  Company Number: ES-ABBOTT-11P-144-0715343-00

PATIENT
  Age: 18 Year
  Sex: Female

DRUGS (2)
  1. HUMIRA [Suspect]
     Indication: STEROID THERAPY
     Dosage: LOADING DOSE 160MG
     Route: 058
     Dates: start: 20110301
  2. HUMIRA [Suspect]
     Dosage: LOADING DOSE 80MG
     Route: 058
     Dates: end: 20110301

REACTIONS (5)
  - TRANSAMINASES INCREASED [None]
  - PYREXIA [None]
  - ERYTHEMA [None]
  - EYE OEDEMA [None]
  - MYALGIA [None]
